FAERS Safety Report 20843911 (Version 9)
Quarter: 2022Q3

REPORT INFORMATION
  Report Type: Spontaneous
  Country: US (occurrence: US)
  Receive Date: 20220518
  Receipt Date: 20220813
  Transmission Date: 20221027
  Serious: Yes (Hospitalization, Other)
  Sender: FDA-Public Use
  Company Number: US-MALLINCKRODT-T202202466

PATIENT
  Age: 48 Year
  Sex: Female

DRUGS (5)
  1. H.P. ACTHAR [Suspect]
     Active Substance: CORTICOTROPIN
     Indication: Dry eye
     Dosage: 40 UNITS EVERY 72 HOURS
     Route: 058
     Dates: start: 20190423, end: 202007
  2. H.P. ACTHAR [Suspect]
     Active Substance: CORTICOTROPIN
     Indication: Keratitis
     Dosage: UNK, RESUMED
     Route: 065
  3. H.P. ACTHAR [Suspect]
     Active Substance: CORTICOTROPIN
     Indication: Stevens-Johnson syndrome
     Dosage: 40 UNITS (0.5 MILLILITER), TWICE A WEEK
     Route: 058
     Dates: start: 202203, end: 2022
  4. H.P. ACTHAR [Suspect]
     Active Substance: CORTICOTROPIN
     Indication: Sjogren^s syndrome
     Dosage: 40 UNITS (0.5 MILLILITER), TWICE A WEEK
     Route: 058
     Dates: start: 202203, end: 2022
  5. H.P. ACTHAR [Suspect]
     Active Substance: CORTICOTROPIN
     Dosage: UNK
     Route: 065
     Dates: start: 202204, end: 202205

REACTIONS (10)
  - Blood magnesium decreased [Unknown]
  - Blood creatine increased [Unknown]
  - Renal impairment [Not Recovered/Not Resolved]
  - Dizziness [Unknown]
  - Kidney transplant rejection [Unknown]
  - Blood electrolytes abnormal [Unknown]
  - Blood urea increased [Unknown]
  - Glomerular filtration rate decreased [Unknown]
  - Asthenia [Unknown]
  - Fatigue [Unknown]

NARRATIVE: CASE EVENT DATE: 20200701
